FAERS Safety Report 24106799 (Version 1)
Quarter: 2024Q3

REPORT INFORMATION
  Report Type: Spontaneous
  Country: US (occurrence: US)
  Receive Date: 20240717
  Receipt Date: 20240717
  Transmission Date: 20241016
  Serious: No
  Sender: LEXICON PHARMACEUTICALS
  Company Number: US-LEX-000352

PATIENT
  Sex: Male

DRUGS (1)
  1. INPEFA [Suspect]
     Active Substance: SOTAGLIFLOZIN
     Indication: Coronary artery disease
     Dosage: IN THE MORNING
     Route: 048

REACTIONS (3)
  - Dehydration [Recovered/Resolved]
  - Dizziness [Recovered/Resolved]
  - Off label use [Unknown]
